FAERS Safety Report 24392445 (Version 1)
Quarter: 2024Q4

REPORT INFORMATION
  Report Type: Spontaneous
  Country: US (occurrence: US)
  Receive Date: 20241003
  Receipt Date: 20241003
  Transmission Date: 20250115
  Serious: No
  Sender: PURACAP
  Company Number: US-PURACAP-US-2024EPCSPO01166

PATIENT
  Sex: Female

DRUGS (10)
  1. IBUPROFEN [Suspect]
     Active Substance: IBUPROFEN
     Indication: Product used for unknown indication
     Dosage: 300 CT
     Route: 048
  2. IBUPROFEN [Suspect]
     Active Substance: IBUPROFEN
  3. IBUPROFEN [Suspect]
     Active Substance: IBUPROFEN
  4. IBUPROFEN [Suspect]
     Active Substance: IBUPROFEN
  5. IBUPROFEN [Suspect]
     Active Substance: IBUPROFEN
  6. IBUPROFEN [Suspect]
     Active Substance: IBUPROFEN
  7. IBUPROFEN [Suspect]
     Active Substance: IBUPROFEN
  8. IBUPROFEN [Suspect]
     Active Substance: IBUPROFEN
  9. IBUPROFEN [Suspect]
     Active Substance: IBUPROFEN
  10. IBUPROFEN [Suspect]
     Active Substance: IBUPROFEN

REACTIONS (4)
  - Oral discomfort [Unknown]
  - Oral discomfort [Unknown]
  - Product leakage [Unknown]
  - Product physical issue [Unknown]
